FAERS Safety Report 11544311 (Version 1)
Quarter: 2015Q3

REPORT INFORMATION
  Report Type: Spontaneous
  Country: US (occurrence: None)
  Receive Date: 20150923
  Receipt Date: 20150923
  Transmission Date: 20151125
  Serious: No
  Sender: FDA-Public Use
  Company Number: None

PATIENT
  Age: 50 Year
  Sex: Female

DRUGS (1)
  1. MODAFINIL TABLETS 200MG [Suspect]
     Active Substance: MODAFINIL
     Route: 048
     Dates: start: 20150723, end: 20150825

REACTIONS (2)
  - No reaction on previous exposure to drug [None]
  - Somnolence [None]

NARRATIVE: CASE EVENT DATE: 20150723
